FAERS Safety Report 16822586 (Version 6)
Quarter: 2020Q2

REPORT INFORMATION
  Report Type: Spontaneous
  Country: US (occurrence: US)
  Receive Date: 20190918
  Receipt Date: 20200611
  Transmission Date: 20200713
  Serious: No
  Sender: FDA-Public Use
  Company Number: US-PFIZER INC-2019399809

PATIENT
  Age: 52 Year
  Sex: Female

DRUGS (1)
  1. LYRICA [Suspect]
     Active Substance: PREGABALIN
     Indication: DIABETIC NEUROPATHY
     Dosage: 150 MG, 3X/DAY(TAKE 1 CAPSULE BY ORAL ROUTE 3 TIMES EVERY DAYPRN/3 TIMES EVERY DAY AS NEEDED)
     Route: 048

REACTIONS (2)
  - Off label use [Unknown]
  - Pain [Unknown]
